FAERS Safety Report 5773102-5 (Version None)
Quarter: 2008Q2

REPORT INFORMATION
  Report Type: 
  Country: None (occurrence: None)
  Receive Date: 20080603
  Receipt Date: 20080522
  Transmission Date: 20081010
  Serious: Yes (Hospitalization)
  Sender: FDA-Public Use
  Company Number: WSDF_00732

PATIENT
  Age: 24 Month
  Sex: Male

DRUGS (1)
  1. WINRHO SDF [Suspect]
     Indication: IDIOPATHIC THROMBOCYTOPENIC PURPURA
     Dates: start: 20080513, end: 20080513

REACTIONS (2)
  - INTRAVASCULAR HAEMOLYSIS [None]
  - NO THERAPEUTIC RESPONSE [None]
